FAERS Safety Report 9657133 (Version 1)
Quarter: 2013Q4

REPORT INFORMATION
  Report Type: Spontaneous
  Country: US (occurrence: US)
  Receive Date: 20131030
  Receipt Date: 20131030
  Transmission Date: 20140711
  Serious: Yes (Congenital Anomaly)
  Sender: FDA-Public Use
  Company Number: US-FRI-1000050548

PATIENT
  Age: 0 Day
  Sex: Female

DRUGS (1)
  1. LEXAPRO [Suspect]
     Route: 064

REACTIONS (6)
  - Congenital anomaly [Unknown]
  - Heart disease congenital [Unknown]
  - Atrial septal defect [Unknown]
  - Right atrial dilatation [Unknown]
  - Dilatation ventricular [Unknown]
  - Pulmonary valve stenosis [Unknown]
